FAERS Safety Report 6282641-2 (Version None)
Quarter: 2009Q3

REPORT INFORMATION
  Report Type: 
  Country: None (occurrence: None)
  Receive Date: 20090724
  Receipt Date: 20090721
  Transmission Date: 20100115
  Serious: Yes (Death, Other)
  Sender: FDA-Public Use
  Company Number: PHHY2009BR30165

PATIENT
  Age: 86 Year
  Sex: Female

DRUGS (2)
  1. EXELON [Suspect]
     Dosage: 3 MG, TID
  2. HYDERGINE [Suspect]
     Dosage: UNK

REACTIONS (1)
  - PANCREATIC CARCINOMA [None]
